FAERS Safety Report 4679122-6 (Version None)
Quarter: 2005Q2

REPORT INFORMATION
  Report Type: 
  Country: None (occurrence: None)
  Receive Date: 20050527
  Receipt Date: 20050228
  Transmission Date: 20051028
  Serious: No
  Sender: FDA-Public Use
  Company Number: PHEH2005US02550

PATIENT
  Age: 67 Year
  Sex: Female

DRUGS (4)
  1. ZELNORM [Suspect]
     Indication: IRRITABLE BOWEL SYNDROME
     Dosage: 6 MG, QD, ORAL
     Route: 048
     Dates: start: 20050110, end: 20050216
  2. TENORETIC I(ATENOLOL, CHLORTALIDONE) [Concomitant]
  3. ACIPHEX [Concomitant]
  4. VITAMINS (NO INGREDIENT/SUBSTANCES) [Concomitant]

REACTIONS (4)
  - ABDOMINAL PAIN UPPER [None]
  - DIZZINESS [None]
  - DYSURIA [None]
  - TINNITUS [None]
